FAERS Safety Report 22210253 (Version 3)
Quarter: 2024Q4

REPORT INFORMATION
  Report Type: Report from Study
  Country: BR (occurrence: BR)
  Receive Date: 20230414
  Receipt Date: 20241031
  Transmission Date: 20250115
  Serious: Yes (Hospitalization, Disabling, Other)
  Sender: CELLTRION
  Company Number: BR-CELLTRION INC.-2023BR007490

PATIENT

DRUGS (3)
  1. INFLIXIMAB [Suspect]
     Active Substance: INFLIXIMAB
     Indication: Crohn^s disease
     Dosage: 2 AMPOULES EVERY 6 WEEKS
     Route: 042
  2. INFLIXIMAB [Suspect]
     Active Substance: INFLIXIMAB
     Dosage: 3 AMPOULES EVERY 6 WEEKS
     Route: 042
     Dates: start: 20230106
  3. AZATHIOPRINE [Concomitant]
     Active Substance: AZATHIOPRINE
     Indication: Crohn^s disease
     Dosage: 1 PILL PER DAY
     Route: 048
     Dates: start: 2022

REACTIONS (14)
  - Gait inability [Unknown]
  - Gastrointestinal inflammation [Unknown]
  - Lung disorder [Unknown]
  - Thrombosis [Unknown]
  - Colostomy [Unknown]
  - Pain in extremity [Unknown]
  - Pancreatitis [Recovered/Resolved with Sequelae]
  - Appendicitis [Recovered/Resolved with Sequelae]
  - Cardiac valve vegetation [Unknown]
  - Abdominal pain [Unknown]
  - Arthralgia [Unknown]
  - Diarrhoea [Unknown]
  - Pyrexia [Unknown]
  - Intentional product use issue [Unknown]

NARRATIVE: CASE EVENT DATE: 20230221
